FAERS Safety Report 10161080 (Version 1)
Quarter: 2014Q2

REPORT INFORMATION
  Report Type: Spontaneous
  Country: US (occurrence: US)
  Receive Date: 20140508
  Receipt Date: 20140508
  Transmission Date: 20141212
  Serious: No
  Sender: FDA-Public Use
  Company Number: US-PFIZER INC-2014122943

PATIENT
  Age: 64 Year
  Sex: Female
  Weight: 72.11 kg

DRUGS (1)
  1. AMLODIPINE BESILATE [Suspect]
     Dosage: 2.5 MG, 1X/DAY

REACTIONS (2)
  - Drug hypersensitivity [Unknown]
  - Gastrointestinal disorder [Unknown]
